FAERS Safety Report 10086170 (Version 1)
Quarter: 2014Q2

REPORT INFORMATION
  Report Type: Spontaneous
  Country: US (occurrence: US)
  Receive Date: 20140418
  Receipt Date: 20140418
  Transmission Date: 20141212
  Serious: Yes (Other)
  Sender: FDA-Public Use
  Company Number: US-SA-2014SA045057

PATIENT
  Sex: 0

DRUGS (4)
  1. AMARYL [Suspect]
     Indication: DIABETES MELLITUS
     Route: 065
  2. VICTOZA [Concomitant]
  3. METFORMIN [Concomitant]
  4. ASPIRIN [Concomitant]

REACTIONS (5)
  - Haemorrhage [Unknown]
  - Contusion [Unknown]
  - Blood glucose increased [Unknown]
  - Nausea [Unknown]
  - Headache [Unknown]
